FAERS Safety Report 14720555 (Version 1)
Quarter: 2018Q2

REPORT INFORMATION
  Report Type: Spontaneous
  Country: US (occurrence: US)
  Receive Date: 20180405
  Receipt Date: 20180405
  Transmission Date: 20180711
  Serious: Yes (Other)
  Sender: FDA-Public Use
  Company Number: US-LPDUSPRD-20180476

PATIENT

DRUGS (3)
  1. LENALIDOMIDE [Suspect]
     Active Substance: LENALIDOMIDE
     Dosage: 25 MG
     Route: 048
  2. BORTEZOMIB [Suspect]
     Active Substance: BORTEZOMIB
     Dosage: 1.5 MG/M2
     Route: 058
  3. DEXAMETHASONE SODIUM PHOSPHATE INJECTION, USP (4901-25) [Suspect]
     Active Substance: DEXAMETHASONE SODIUM PHOSPHATE
     Dosage: 40 MG
     Route: 065

REACTIONS (1)
  - Neuropathy peripheral [Unknown]
